FAERS Safety Report 6391937-5 (Version None)
Quarter: 2009Q4

REPORT INFORMATION
  Report Type: 
  Country: None (occurrence: None)
  Receive Date: 20091007
  Receipt Date: 20091001
  Transmission Date: 20100525
  Serious: Yes (Hospitalization)
  Sender: FDA-Public Use
  Company Number: A0806788A

PATIENT
  Age: 52 Year
  Sex: Male

DRUGS (5)
  1. ARIXTRA [Suspect]
     Indication: DEEP VEIN THROMBOSIS
     Dosage: 7.5MG PER DAY
     Route: 058
     Dates: start: 20080801
  2. LOPRESSOR [Concomitant]
  3. GLUCOPHAGE [Concomitant]
  4. ZESTRIL [Concomitant]
  5. DYAZIDE [Concomitant]

REACTIONS (5)
  - COAGULOPATHY [None]
  - DEEP VEIN THROMBOSIS [None]
  - DYSPNOEA [None]
  - PULMONARY EMBOLISM [None]
  - TREATMENT NONCOMPLIANCE [None]
